FAERS Safety Report 9666570 (Version 1)
Quarter: 2013Q4

REPORT INFORMATION
  Report Type: Spontaneous
  Country: US (occurrence: None)
  Receive Date: 20131101
  Receipt Date: 20131101
  Transmission Date: 20140711
  Serious: Yes (Life-Threatening)
  Sender: FDA-Public Use
  Company Number: None

PATIENT
  Age: 65 Year
  Sex: Female

DRUGS (1)
  1. XOLAIR [Suspect]
     Indication: ASTHMA
     Dates: start: 20080923, end: 20091215

REACTIONS (4)
  - Hypertension [None]
  - Pulmonary thrombosis [None]
  - Arterial thrombosis [None]
  - Breast cancer female [None]
